FAERS Safety Report 7356027-3 (Version None)
Quarter: 2011Q1

REPORT INFORMATION
  Report Type: 
  Country: None (occurrence: None)
  Receive Date: 20110310
  Receipt Date: 20110310
  Transmission Date: 20110831
  Serious: Yes (Hospitalization)
  Sender: FDA-Public Use
  Company Number: None

PATIENT
  Age: 31 Year
  Sex: Female
  Weight: 65.7716 kg

DRUGS (1)
  1. IMODIUM MULTI-SYMPTOM RELIEF [Suspect]
     Indication: DIARRHOEA
     Dosage: MAX. 4 CAPLETS PER DAY AFTER LOOSE STOOL PO
     Route: 048
     Dates: start: 20100111, end: 20100112

REACTIONS (3)
  - ABDOMINAL PAIN UPPER [None]
  - CLOSTRIDIUM DIFFICILE COLITIS [None]
  - VOMITING [None]
